FAERS Safety Report 7932321-X (Version None)
Quarter: 2011Q4

REPORT INFORMATION
  Report Type: 
  Country: None (occurrence: None)
  Receive Date: 20111121
  Receipt Date: 20111117
  Transmission Date: 20120403
  Serious: Yes (Other)
  Sender: FDA-Public Use
  Company Number: GB-MERCK-1111GBR00076

PATIENT
  Age: 59 Year
  Sex: Male
  Weight: 89 kg

DRUGS (7)
  1. RIZATRIPTAN BENZOATE [Concomitant]
     Route: 048
     Dates: start: 20110824
  2. JANUVIA [Suspect]
     Route: 048
     Dates: start: 20110727
  3. GLICLAZIDE [Concomitant]
     Route: 065
     Dates: start: 20110727
  4. METFORMIN [Concomitant]
     Route: 065
     Dates: start: 20110727
  5. PRAVASTATIN SODIUM [Concomitant]
     Route: 065
     Dates: start: 20110727
  6. AMITRIPTYLINE HYDROCHLORIDE [Concomitant]
     Route: 065
     Dates: start: 20110727
  7. PROPRANOLOL HYDROCHLORIDE [Concomitant]
     Route: 065
     Dates: start: 20110727

REACTIONS (3)
  - DIARRHOEA [None]
  - CONSTIPATION [None]
  - GASTROINTESTINAL DISORDER [None]
